FAERS Safety Report 18069862 (Version 1)
Quarter: 2020Q3

REPORT INFORMATION
  Report Type: Spontaneous
  Country: US (occurrence: US)
  Receive Date: 20200727
  Receipt Date: 20200727
  Transmission Date: 20201103
  Serious: Yes (Hospitalization)
  Sender: FDA-Public Use
  Company Number: US-MICRO LABS LIMITED-ML2020-02196

PATIENT
  Age: 6 Year
  Sex: Female

DRUGS (14)
  1. FOSPHENYTOIN [Suspect]
     Active Substance: FOSPHENYTOIN
     Indication: STATUS EPILEPTICUS
  2. DEXMEDETOMIDINE. [Suspect]
     Active Substance: DEXMEDETOMIDINE
     Indication: STATUS EPILEPTICUS
  3. MIDAZOLAM. [Suspect]
     Active Substance: MIDAZOLAM
  4. PENTOBARBITAL. [Suspect]
     Active Substance: PENTOBARBITAL
     Indication: SEIZURE
  5. CLONIDINE. [Suspect]
     Active Substance: CLONIDINE
  6. MIDAZOLAM. [Suspect]
     Active Substance: MIDAZOLAM
     Indication: STATUS EPILEPTICUS
  7. LORAZEPAM. [Suspect]
     Active Substance: LORAZEPAM
     Indication: STATUS EPILEPTICUS
     Route: 042
  8. OXCARBAZEPINE. [Suspect]
     Active Substance: OXCARBAZEPINE
  9. LEVETIRACETAM. [Suspect]
     Active Substance: LEVETIRACETAM
     Indication: STATUS EPILEPTICUS
  10. VALPROATE SODIUM. [Suspect]
     Active Substance: VALPROATE SODIUM
  11. CLONAZEPAM. [Suspect]
     Active Substance: CLONAZEPAM
  12. TOPIRAMATE. [Suspect]
     Active Substance: TOPIRAMATE
  13. DIAZEPAM. [Suspect]
     Active Substance: DIAZEPAM
     Indication: STATUS EPILEPTICUS
     Route: 054
  14. METHADONE [Suspect]
     Active Substance: METHADONE HYDROCHLORIDE

REACTIONS (1)
  - Drug ineffective [Unknown]
